FAERS Safety Report 8583511 (Version 2)
Quarter: 2012Q4

REPORT INFORMATION
  Report Type: 
  Country: CA (occurrence: None)
  Receive Date: 20120427
  Receipt Date: 20120921
  Transmission Date: 20130627
  Serious: Yes (Other)
  Sender: FDA-Public Use
  Company Number: AECAN201200212

PATIENT
  Age: 59 Year
  Sex: Male
  Weight: 97.5 kg

DRUGS (1)
  1. IGIVNEX [Suspect]
     Indication: THROMBOCYTOPENIA
     Route: 042
     Dates: start: 20120325, end: 20120325

REACTIONS (10)
  - Chills [None]
  - Hypertension [None]
  - Nausea [None]
  - Vomiting [None]
  - Haematuria [None]
  - Headache [None]
  - Haemoglobin decreased [None]
  - Alanine aminotransferase increased [None]
  - Blood lactate dehydrogenase increased [None]
  - Delayed haemolytic transfusion reaction [None]
